FAERS Safety Report 24833513 (Version 2)
Quarter: 2025Q3

REPORT INFORMATION
  Report Type: Report from Study
  Country: US (occurrence: US)
  Receive Date: 20250112
  Receipt Date: 20250810
  Transmission Date: 20251021
  Serious: Yes (Hospitalization)
  Sender: ALEXION PHARMACEUTICALS
  Company Number: US-AstraZeneca-CH-00752569A

PATIENT
  Sex: Male
  Weight: 83.447 kg

DRUGS (1)
  1. ACALABRUTINIB [Suspect]
     Active Substance: ACALABRUTINIB
     Indication: Mantle cell lymphoma
     Dosage: 100 MILLIGRAM, BID

REACTIONS (1)
  - Hyperglycaemia [Recovering/Resolving]
